FAERS Safety Report 5474179-7 (Version None)
Quarter: 2007Q3

REPORT INFORMATION
  Report Type: 
  Country: None (occurrence: None)
  Receive Date: 20070928
  Receipt Date: 20070928
  Transmission Date: 20080115
  Serious: No
  Sender: FDA-Public Use
  Company Number: None

PATIENT
  Age: 50 Year
  Sex: Female

DRUGS (6)
  1. CYTOXAN [Suspect]
     Dosage: 125 MG/DAY
     Dates: start: 20060929, end: 20061116
  2. PREDNISONE [Concomitant]
  3. AMBIEN [Concomitant]
  4. DARVON [Concomitant]
  5. BACTRIM [Concomitant]
  6. VITAMIN CAP [Concomitant]

REACTIONS (4)
  - ARTHRALGIA [None]
  - HEPATOTOXICITY [None]
  - LIVER INJURY [None]
  - PYREXIA [None]
